FAERS Safety Report 9985182 (Version 1)
Quarter: 2014Q1

REPORT INFORMATION
  Report Type: Report from Study
  Country: US (occurrence: US)
  Receive Date: 20140307
  Receipt Date: 20140307
  Transmission Date: 20141002
  Serious: No
  Sender: FDA-Public Use
  Company Number: US-ABBVIE-13P-163-1184937-00

PATIENT
  Age: 59 Year
  Sex: Male

DRUGS (17)
  1. HUMIRA [Suspect]
     Indication: ANKYLOSING SPONDYLITIS
     Dates: start: 20131205
  2. LEXAPRO [Concomitant]
     Indication: DEPRESSION
  3. LEXAPRO [Concomitant]
     Indication: ANXIETY
  4. PLAVIX [Concomitant]
     Indication: PRODUCT USED FOR UNKNOWN INDICATION
     Dosage: HAD A HEART ATTACK 4 YEARS AGO- PUR IN A STENT
  5. COREG [Concomitant]
     Indication: PRODUCT USED FOR UNKNOWN INDICATION
  6. JANUVIA [Concomitant]
     Indication: GLUCOSE TOLERANCE IMPAIRED
  7. METFORMIN [Concomitant]
     Indication: PRODUCT USED FOR UNKNOWN INDICATION
  8. DICLOFENAC [Concomitant]
     Indication: PRODUCT USED FOR UNKNOWN INDICATION
  9. LIPITOR [Concomitant]
     Indication: PRODUCT USED FOR UNKNOWN INDICATION
     Dosage: HOUR OF SLEEP
  10. GABAPENTIN [Concomitant]
     Indication: NEURALGIA
  11. GLIPIZIDE [Concomitant]
     Indication: PRODUCT USED FOR UNKNOWN INDICATION
  12. ASPIRIN [Concomitant]
     Indication: PRODUCT USED FOR UNKNOWN INDICATION
  13. LISINOPRIL [Concomitant]
     Indication: PRODUCT USED FOR UNKNOWN INDICATION
  14. NITROGLYCERIN [Concomitant]
     Indication: PRODUCT USED FOR UNKNOWN INDICATION
     Dosage: CARRIES SINCE HIS HEART ATTACK
  15. HYDROCODONE [Concomitant]
     Indication: ANKYLOSING SPONDYLITIS
     Dosage: 5/325MG; AS NEEDED
  16. HYDROCODONE [Concomitant]
     Indication: CROHN^S DISEASE
  17. OXYCODONE ACETAMINOPHEN [Concomitant]
     Indication: PAIN
     Dosage: 5/35

REACTIONS (1)
  - Arthralgia [Not Recovered/Not Resolved]
